FAERS Safety Report 4467064-0 (Version None)
Quarter: 2004Q4

REPORT INFORMATION
  Report Type: 
  Country: None (occurrence: None)
  Receive Date: 20041001
  Receipt Date: 20041001
  Transmission Date: 20050328
  Serious: Yes (Death)
  Sender: FDA-Public Use
  Company Number: None

PATIENT
  Age: 57 Year
  Sex: Male
  Weight: 63.05 kg

DRUGS (3)
  1. CISPLATIN [Suspect]
     Indication: LARYNGEAL CANCER
     Dosage: 180 MG/Q 21 DAYS IV X 3 DOSES
     Route: 042
     Dates: start: 20040720
  2. CISPLATIN [Suspect]
     Indication: LARYNGEAL CANCER
     Dosage: 180 MG/Q 21 DAYS IV X 3 DOSES
     Route: 042
     Dates: start: 20040819
  3. CISPLATIN [Suspect]
     Indication: LARYNGEAL CANCER
     Dosage: 180 MG/Q 21 DAYS IV X 3 DOSES
     Route: 042
     Dates: start: 20040909

REACTIONS (2)
  - CARDIAC ARREST [None]
  - MYOCARDIAL ISCHAEMIA [None]
